FAERS Safety Report 14943009 (Version 1)
Quarter: 2018Q2

REPORT INFORMATION
  Report Type: Spontaneous
  Country: IT (occurrence: IT)
  Receive Date: 20180528
  Receipt Date: 20180528
  Transmission Date: 20180711
  Serious: Yes (Hospitalization)
  Sender: FDA-Public Use
  Company Number: IT-TEVA-2018-IT-895434

PATIENT
  Age: 82 Year
  Sex: Female

DRUGS (2)
  1. VESSEL? 250 ULS CAPSULE MOLLI [Concomitant]
     Route: 065
  2. TICLOPIDINE [Suspect]
     Active Substance: TICLOPIDINE
     Indication: RETINAL VEIN THROMBOSIS
     Route: 048

REACTIONS (3)
  - Anaemia [Recovered/Resolved]
  - Leukopenia [Recovered/Resolved]
  - Thrombocytopenia [Recovered/Resolved]

NARRATIVE: CASE EVENT DATE: 20170607
